FAERS Safety Report 10174798 (Version 1)
Quarter: 2014Q2

REPORT INFORMATION
  Report Type: Spontaneous
  Country: US (occurrence: None)
  Receive Date: 20140416
  Receipt Date: 20140416
  Transmission Date: 20141212
  Serious: Yes (Other)
  Sender: FDA-Public Use
  Company Number: 163-POMAL-13123095

PATIENT
  Age: 63 Year
  Sex: Male
  Weight: 81 kg

DRUGS (8)
  1. POMALYST [Suspect]
     Indication: PLASMA CELL MYELOMA
     Route: 048
     Dates: start: 20130923
  2. SODIUM BICARBONATE(SODIUM BICARBONATE)(POWDER) [Concomitant]
  3. FOSRENOL(LANTHANUM CARBONATE) [Concomitant]
  4. AMIODARONE HCL(AMIODARONE HYDROCHLORIDE) [Concomitant]
  5. ZOCOR(SIMVASTATIN) [Concomitant]
  6. COUMADIN(WARFARIN SODIUM) [Concomitant]
  7. COREG(CARVEDILOL) [Concomitant]
  8. EFFEXOR(VENLAFAXINE HYDROCHLORIDE) [Concomitant]

REACTIONS (1)
  - Staphylococcal sepsis [None]
